FAERS Safety Report 17347118 (Version 1)
Quarter: 2020Q1

REPORT INFORMATION
  Report Type: Spontaneous
  Country: US (occurrence: US)
  Receive Date: 20200114
  Receipt Date: 20200114
  Transmission Date: 20200409
  Serious: No
  Sender: FDA-Public Use
  Company Number: None

PATIENT
  Age: 38 Year
  Sex: Female
  Weight: 65.77 kg

DRUGS (3)
  1. RISPERDAL [Concomitant]
     Active Substance: RISPERIDONE
  2. LITHIUM. [Concomitant]
     Active Substance: LITHIUM
  3. RISPERIDONE. [Suspect]
     Active Substance: RISPERIDONE
     Indication: SCHIZOPHRENIA
     Dosage: ?          QUANTITY:1 PILL;?
     Route: 048
     Dates: start: 2017

REACTIONS (5)
  - Loss of personal independence in daily activities [None]
  - Musculoskeletal disorder [None]
  - Feeling cold [None]
  - Posture abnormal [None]
  - Restless legs syndrome [None]
